FAERS Safety Report 17230295 (Version 2)
Quarter: 2020Q2

REPORT INFORMATION
  Report Type: Spontaneous
  Country: US (occurrence: US)
  Receive Date: 20200103
  Receipt Date: 20200601
  Transmission Date: 20200713
  Serious: No
  Sender: FDA-Public Use
  Company Number: US-BAYER-2019-238068

PATIENT
  Age: 68 Year
  Sex: Female

DRUGS (3)
  1. MIRALAX [Suspect]
     Active Substance: POLYETHYLENE GLYCOL 3350
     Indication: CONSTIPATION
     Dosage: 2 DF
     Route: 048
     Dates: start: 201909
  2. MIRALAX [Suspect]
     Active Substance: POLYETHYLENE GLYCOL 3350
     Indication: DIVERTICULUM
     Dosage: 2 DF
     Route: 048
     Dates: start: 201911
  3. MIRALAX [Suspect]
     Active Substance: POLYETHYLENE GLYCOL 3350
     Indication: CONSTIPATION
     Dosage: 1 DF
     Route: 048
     Dates: start: 201911

REACTIONS (7)
  - Abdominal rigidity [Unknown]
  - Off label use [Unknown]
  - Diarrhoea [Unknown]
  - Abnormal faeces [Unknown]
  - Chest pain [Unknown]
  - Product use in unapproved indication [Unknown]
  - Contraindicated product administered [None]

NARRATIVE: CASE EVENT DATE: 2019
